FAERS Safety Report 6996474-2 (Version None)
Quarter: 2010Q3

REPORT INFORMATION
  Report Type: 
  Country: None (occurrence: None)
  Receive Date: 20100918
  Receipt Date: 20090313
  Transmission Date: 20110219
  Serious: No
  Sender: FDA-Public Use
  Company Number: US-WYE-H08576809

PATIENT
  Sex: Female
  Weight: 88.53 kg

DRUGS (4)
  1. EFFEXOR XR [Suspect]
     Indication: DEPRESSION
     Route: 048
     Dates: start: 20010101
  2. TRAZODONE HCL [Concomitant]
  3. KLONOPIN [Concomitant]
  4. LAMOTRIGINE [Concomitant]

REACTIONS (1)
  - DRUG SCREEN POSITIVE [None]
